FAERS Safety Report 17094902 (Version 1)
Quarter: 2019Q4

REPORT INFORMATION
  Report Type: Report from Study
  Country: IT (occurrence: IT)
  Receive Date: 20191130
  Receipt Date: 20191130
  Transmission Date: 20200122
  Serious: Yes (Other)
  Sender: FDA-Public Use
  Company Number: IT-ACCORD-162824

PATIENT
  Age: 71 Year
  Sex: Female

DRUGS (5)
  1. ARIPIPRAZOLE. [Suspect]
     Active Substance: ARIPIPRAZOLE
     Indication: PERSONALITY DISORDER
     Route: 048
     Dates: start: 20190801, end: 20191012
  2. BRINTELLIX [Suspect]
     Active Substance: VORTIOXETINE HYDROBROMIDE
     Indication: DEPRESSION
     Dosage: STRENGTH: 5 MG
     Route: 048
     Dates: start: 20190801, end: 20191012
  3. LORAZEPAM. [Concomitant]
     Active Substance: LORAZEPAM
     Indication: ANXIETY
     Route: 048
  4. FULCROSUPRA [Concomitant]
     Active Substance: FENOFIBRATE
     Dosage: STRENGTH: 145 MG FILM-COATED TABLET
     Route: 048
  5. FELISON [Concomitant]
     Active Substance: FLURAZEPAM MONOHYDROCHLORIDE
     Indication: ANXIETY
     Dosage: STRENGTH: 30 MG
     Route: 048

REACTIONS (4)
  - Auditory disorder [Recovering/Resolving]
  - Hallucination, auditory [Recovering/Resolving]
  - Anxiety [Recovering/Resolving]
  - Tinnitus [Recovering/Resolving]

NARRATIVE: CASE EVENT DATE: 20191012
